FAERS Safety Report 7574215-8 (Version None)
Quarter: 2011Q2

REPORT INFORMATION
  Report Type: 
  Country: None (occurrence: None)
  Receive Date: 20110627
  Receipt Date: 20110622
  Transmission Date: 20111010
  Serious: Yes (Other)
  Sender: FDA-Public Use
  Company Number: US-SHIRE-ALL1-2011-01972

PATIENT
  Age: 6 Year
  Sex: Male

DRUGS (1)
  1. VYVANSE [Suspect]
     Indication: PRODUCT USED FOR UNKNOWN INDICATION
     Dosage: 20 MG, UNKNOWN
     Route: 048

REACTIONS (4)
  - INCOHERENT [None]
  - DRY MOUTH [None]
  - TACHYCARDIA [None]
  - FOAMING AT MOUTH [None]
